FAERS Safety Report 8913734 (Version 1)
Quarter: 2012Q4

REPORT INFORMATION
  Report Type: 
  Country: DE (occurrence: DE)
  Receive Date: 20121119
  Receipt Date: 20121119
  Transmission Date: 20130627
  Serious: Yes (Other)
  Sender: FDA-Public Use
  Company Number: DE-JNJFOC-20120813111

PATIENT
  Age: 73 Year
  Sex: Male
  Weight: 104 kg

DRUGS (9)
  1. XARELTO [Suspect]
     Indication: CEREBROVASCULAR ACCIDENT PROPHYLAXIS
     Route: 065
     Dates: start: 20120422, end: 20120515
  2. XARELTO [Suspect]
     Indication: ATRIAL FIBRILLATION
     Route: 065
     Dates: start: 20120422, end: 20120515
  3. CARBAMAZEPIN [Suspect]
     Indication: TRIGEMINAL NEURALGIA
     Route: 048
     Dates: start: 20120422, end: 20120515
  4. FOSTER [Concomitant]
     Route: 055
  5. VALSARTAN [Concomitant]
     Indication: HYPERTENSION
     Route: 048
  6. TAMSULOSIN [Concomitant]
     Indication: HYPERTENSION
     Route: 048
  7. MARCUMAR [Concomitant]
     Indication: PRODUCT USED FOR UNKNOWN INDICATION
     Dates: start: 201204, end: 201204
  8. LYRICA [Concomitant]
     Indication: FACIAL PAIN
     Route: 048
  9. LYRICA [Concomitant]
     Indication: TRIGEMINAL NEURALGIA
     Route: 048

REACTIONS (2)
  - Thrombocytopenia [Recovered/Resolved]
  - Skin haemorrhage [Unknown]
